FAERS Safety Report 21529280 (Version 2)
Quarter: 2023Q2

REPORT INFORMATION
  Report Type: Spontaneous
  Country: KR (occurrence: KR)
  Receive Date: 20221031
  Receipt Date: 20230602
  Transmission Date: 20230721
  Serious: Yes (Life-Threatening, Hospitalization, Other)
  Sender: FDA-Public Use
  Company Number: KR-MYLANLABS-2022M1119442

PATIENT
  Age: 71 Year
  Sex: Female

DRUGS (7)
  1. LYRICA [Suspect]
     Active Substance: PREGABALIN
     Indication: Back pain
     Dosage: 1 DOSAGE FORM, QD
     Route: 065
     Dates: start: 20180618, end: 20180618
  2. CELECOXIB [Suspect]
     Active Substance: CELECOXIB
     Indication: Back pain
     Dosage: 1 DOSAGE FORM, QD
     Route: 065
     Dates: start: 20180618, end: 20180618
  3. PREGABALIN [Suspect]
     Active Substance: PREGABALIN
     Indication: Back pain
     Dosage: 1 DOSAGE FORM, BID (0.5 DAY)
     Route: 048
     Dates: start: 20180618, end: 20180618
  4. CELEBREX [Suspect]
     Active Substance: CELECOXIB
     Indication: Back pain
     Dosage: 200 MILLIGRAM, BID (0.5 DAY)
     Route: 048
     Dates: start: 20180618, end: 20180618
  5. EPERISONE HYDROCHLORIDE [Suspect]
     Active Substance: EPERISONE HYDROCHLORIDE
     Indication: Back pain
     Dosage: 1 DOSAGE FORM, QD
     Route: 065
     Dates: start: 20180618, end: 20180618
  6. EPERISONE HYDROCHLORIDE [Suspect]
     Active Substance: EPERISONE HYDROCHLORIDE
     Dosage: 1 DOSAGE FORM, TID (0.33 DAY)
     Route: 048
     Dates: start: 20180618, end: 20180618
  7. LIMAPROST [Suspect]
     Active Substance: LIMAPROST
     Indication: Back pain
     Dosage: 1 DOSAGE FORM, TID (0.33 DAY)
     Route: 048
     Dates: start: 20180618, end: 20180618

REACTIONS (4)
  - Anaphylactic reaction [Recovered/Resolved]
  - Dyspnoea [Recovered/Resolved]
  - Angioedema [Recovered/Resolved]
  - Off label use [Unknown]

NARRATIVE: CASE EVENT DATE: 20180618
